FAERS Safety Report 9286368 (Version 20)
Quarter: 2015Q2

REPORT INFORMATION
  Report Type: Report from Study
  Country: CA (occurrence: CA)
  Receive Date: 20130513
  Receipt Date: 20150605
  Transmission Date: 20150821
  Serious: Yes (Hospitalization, Other)
  Sender: FDA-Public Use
  Company Number: CA-INCYTE CORPORATION-2013IN000827

PATIENT
  Age: 69 Year
  Sex: Male

DRUGS (18)
  1. TRAZODONE [Concomitant]
     Active Substance: TRAZODONE HYDROCHLORIDE
     Indication: PRODUCT USED FOR UNKNOWN INDICATION
     Dosage: UNKNOWN
  2. TRAZODONE [Concomitant]
     Active Substance: TRAZODONE HYDROCHLORIDE
     Route: 065
  3. PANTOLOC//PANTOPRAZOLE SODIUM SESQUIHYDRATE [Concomitant]
     Active Substance: PANTOPRAZOLE SODIUM
     Dosage: UNKNOWN
  4. CANDESARTAN [Concomitant]
     Active Substance: CANDESARTAN
     Dosage: UNKNOWN
  5. ADVAIR HFA [Concomitant]
     Active Substance: FLUTICASONE PROPIONATE\SALMETEROL XINAFOATE
     Dosage: UNKNOWN
  6. LACTULOSE. [Concomitant]
     Active Substance: LACTULOSE
     Dosage: UNKNOWN
  7. VENTOLIN [Concomitant]
     Active Substance: ALBUTEROL SULFATE
     Dosage: UNKNOWN
  8. LIPITOR [Concomitant]
     Active Substance: ATORVASTATIN CALCIUM
     Dosage: UNKNOWN
  9. MIRTAZAPINE. [Concomitant]
     Active Substance: MIRTAZAPINE
     Dosage: UNKNOWN
  10. MIRTAZAPINE. [Concomitant]
     Active Substance: MIRTAZAPINE
     Route: 065
  11. ATENOLOL. [Concomitant]
     Active Substance: ATENOLOL
     Dosage: UNKNOWN
  12. RATIO-CEFUROXIME [Concomitant]
     Dosage: UNKNOWN
     Route: 065
  13. SOTALOL. [Concomitant]
     Active Substance: SOTALOL
     Dosage: 1 DF, BID
     Route: 065
  14. ASA [Concomitant]
     Active Substance: ASPIRIN
     Dosage: UNKNOWN
  15. LIPITOR [Concomitant]
     Active Substance: ATORVASTATIN CALCIUM
     Route: 065
  16. JAKAFI [Suspect]
     Active Substance: RUXOLITINIB
     Indication: MYELOFIBROSIS
     Dosage: 10 MG, BID
     Route: 048
     Dates: start: 20130409
  17. SOTALOL. [Concomitant]
     Active Substance: SOTALOL
     Dosage: UNKNOWN
  18. ATENOLOL. [Concomitant]
     Active Substance: ATENOLOL
     Route: 065

REACTIONS (23)
  - Malaise [Unknown]
  - Lung abscess [Recovering/Resolving]
  - Constipation [Unknown]
  - Bronchitis [Recovering/Resolving]
  - Cholelithiasis [Unknown]
  - Muscular weakness [Unknown]
  - White blood cell count increased [Unknown]
  - Blood count abnormal [Unknown]
  - Diarrhoea [Unknown]
  - Faeces hard [Unknown]
  - Haemoglobin decreased [Recovering/Resolving]
  - Feeling abnormal [Unknown]
  - Platelet count decreased [Unknown]
  - Aneurysm [Unknown]
  - Drug ineffective [Unknown]
  - Splenomegaly [Unknown]
  - Asthenia [Unknown]
  - Pneumonia [Recovering/Resolving]
  - Abdominal pain upper [Not Recovered/Not Resolved]
  - Genital hypoaesthesia [Unknown]
  - Tremor [Unknown]
  - Abdominal pain [Not Recovered/Not Resolved]
  - Contusion [Unknown]

NARRATIVE: CASE EVENT DATE: 20130415
